FAERS Safety Report 17137151 (Version 1)
Quarter: 2019Q4

REPORT INFORMATION
  Report Type: Spontaneous
  Country: FR (occurrence: FR)
  Receive Date: 20191210
  Receipt Date: 20191210
  Transmission Date: 20200122
  Serious: Yes (Hospitalization, Congenital Anomaly, Other)
  Sender: FDA-Public Use
  Company Number: FR-LUNDBECK-DKLU3008729

PATIENT
  Age: 5 Week
  Sex: Male

DRUGS (26)
  1. URBANYL [Suspect]
     Active Substance: CLOBAZAM
     Route: 064
     Dates: start: 20110202, end: 20110301
  2. DEPAKINE CHRONO [Suspect]
     Active Substance: VALPROATE SODIUM
     Route: 064
     Dates: start: 20110105, end: 20110202
  3. LEVETIRACETAM. [Suspect]
     Active Substance: LEVETIRACETAM
     Route: 064
     Dates: start: 20110301, end: 20110526
  4. DEPAKINE CHRONO [Suspect]
     Active Substance: VALPROATE SODIUM
     Route: 064
     Dates: start: 20110105, end: 20110202
  5. DEPAKINE CHRONO [Suspect]
     Active Substance: VALPROATE SODIUM
     Route: 064
     Dates: start: 20110105, end: 20110202
  6. LEVETIRACETAM. [Suspect]
     Active Substance: LEVETIRACETAM
     Route: 064
     Dates: start: 20110202, end: 20110301
  7. LEVETIRACETAM. [Suspect]
     Active Substance: LEVETIRACETAM
     Route: 064
     Dates: start: 20110202, end: 20110301
  8. URBANYL [Suspect]
     Active Substance: CLOBAZAM
     Indication: PRODUCT USED FOR UNKNOWN INDICATION
     Route: 064
     Dates: start: 20110105, end: 20110202
  9. ASPEGIC (ACETYLSALICYLIC ACID) [Suspect]
     Active Substance: ASPIRIN
     Indication: PRODUCT USED FOR UNKNOWN INDICATION
     Route: 064
     Dates: start: 20110202, end: 20110301
  10. LEVETIRACETAM. [Suspect]
     Active Substance: LEVETIRACETAM
     Route: 064
     Dates: start: 20110202, end: 20110301
  11. SPECIAFOLDINE [Concomitant]
     Active Substance: FOLIC ACID
     Indication: PRODUCT USED FOR UNKNOWN INDICATION
     Route: 065
     Dates: start: 201101, end: 20110802
  12. URBANYL [Suspect]
     Active Substance: CLOBAZAM
     Route: 064
     Dates: start: 20110301, end: 20110526
  13. URBANYL [Suspect]
     Active Substance: CLOBAZAM
     Route: 064
     Dates: start: 20110526, end: 20110802
  14. URBANYL [Suspect]
     Active Substance: CLOBAZAM
     Route: 064
     Dates: start: 20110526, end: 20110802
  15. DEPAKINE CHRONO [Suspect]
     Active Substance: VALPROATE SODIUM
     Indication: PRODUCT USED FOR UNKNOWN INDICATION
     Route: 064
     Dates: start: 201012, end: 20110802
  16. DEPAKINE CHRONO [Suspect]
     Active Substance: VALPROATE SODIUM
     Route: 064
     Dates: start: 20110105, end: 20110202
  17. LEVETIRACETAM. [Suspect]
     Active Substance: LEVETIRACETAM
     Indication: PRODUCT USED FOR UNKNOWN INDICATION
     Route: 064
     Dates: start: 20110105, end: 20110202
  18. LEVETIRACETAM. [Suspect]
     Active Substance: LEVETIRACETAM
     Route: 064
     Dates: start: 20110202, end: 20110301
  19. LEVETIRACETAM. [Suspect]
     Active Substance: LEVETIRACETAM
     Route: 064
     Dates: start: 20110526, end: 20110802
  20. DEPAKINE CHRONO [Suspect]
     Active Substance: VALPROATE SODIUM
     Route: 064
     Dates: start: 20110105, end: 20110202
  21. DEPAKINE CHRONO [Suspect]
     Active Substance: VALPROATE SODIUM
     Route: 064
     Dates: start: 20110105, end: 20110202
  22. DEPAKINE CHRONO [Suspect]
     Active Substance: VALPROATE SODIUM
     Dosage: PROGRESSIVE DIMINUTION
     Route: 063
     Dates: start: 20110202, end: 20110301
  23. ASPEGIC (ACETYLSALICYLIC ACID) [Suspect]
     Active Substance: ASPIRIN
     Route: 064
     Dates: start: 20110301, end: 20110526
  24. URBANYL [Suspect]
     Active Substance: CLOBAZAM
     Route: 064
     Dates: start: 20110202, end: 20110301
  25. DEPAKINE CHRONO [Suspect]
     Active Substance: VALPROATE SODIUM
     Route: 064
     Dates: start: 20110301, end: 20110526
  26. ASPEGIC (ACETYLSALICYLIC ACID) [Suspect]
     Active Substance: ASPIRIN
     Route: 064
     Dates: start: 20110526, end: 20110802

REACTIONS (30)
  - Foetal anticonvulsant syndrome [Unknown]
  - Bronchitis [Unknown]
  - Regurgitation [Unknown]
  - Joint laxity [Unknown]
  - Cognitive disorder [Unknown]
  - Psychomotor hyperactivity [Unknown]
  - Disturbance in attention [Unknown]
  - Neonatal respiratory distress syndrome [Unknown]
  - Vomiting [Unknown]
  - Syncope [Unknown]
  - Laryngitis [Unknown]
  - Speech disorder developmental [Unknown]
  - Intellectual disability [Unknown]
  - Nasopharyngitis [Unknown]
  - Malaise [Unknown]
  - Cardiac murmur functional [Unknown]
  - Fall [Unknown]
  - Autism spectrum disorder [Unknown]
  - Clonic convulsion [Unknown]
  - Tracheitis [Unknown]
  - Epilepsy [Unknown]
  - Head injury [Unknown]
  - Presyncope [Unknown]
  - Dysgraphia [Unknown]
  - Foetal exposure during pregnancy [Recovered/Resolved]
  - Bronchiolitis [Unknown]
  - Dyspraxia [Unknown]
  - Hand-eye coordination impaired [Unknown]
  - Arthropathy [Unknown]
  - Motor developmental delay [Unknown]

NARRATIVE: CASE EVENT DATE: 2011
